FAERS Safety Report 11793880 (Version 1)
Quarter: 2015Q4

REPORT INFORMATION
  Report Type: Spontaneous
  Country: IT (occurrence: IT)
  Receive Date: 20151202
  Receipt Date: 20151202
  Transmission Date: 20160305
  Serious: Yes (Hospitalization)
  Sender: FDA-Public Use
  Company Number: IT-AUROBINDO-AUR-APL-2015-10698

PATIENT
  Age: 81 Year
  Sex: Female

DRUGS (2)
  1. DONEPEZIL FILM COATED TABLETS [Suspect]
     Active Substance: DONEPEZIL
     Indication: PRODUCT USED FOR UNKNOWN INDICATION
     Dosage: 6 DF TOTAL
     Route: 048
     Dates: start: 20150922, end: 20150922
  2. FELODIPINE. [Concomitant]
     Active Substance: FELODIPINE
     Indication: HYPERTENSION
     Dosage: 5 MG
     Route: 048

REACTIONS (5)
  - Sopor [Recovered/Resolved]
  - Headache [Recovered/Resolved]
  - Lipase increased [Unknown]
  - Chest pain [Recovered/Resolved]
  - Medication error [Recovered/Resolved]

NARRATIVE: CASE EVENT DATE: 20150922
